FAERS Safety Report 25546775 (Version 1)
Quarter: 2025Q3

REPORT INFORMATION
  Report Type: Spontaneous
  Country: JP (occurrence: JP)
  Receive Date: 20250714
  Receipt Date: 20250714
  Transmission Date: 20251020
  Serious: Yes (Other)
  Sender: GENMAB
  Company Number: JP-GENMAB-2025-01975

PATIENT
  Age: 7 Decade
  Sex: Female

DRUGS (1)
  1. EPKINLY [Suspect]
     Active Substance: EPCORITAMAB-BYSP
     Indication: Diffuse large B-cell lymphoma
     Route: 058

REACTIONS (1)
  - Diffuse large B-cell lymphoma [Unknown]
